FAERS Safety Report 5114808-0 (Version None)
Quarter: 2006Q3

REPORT INFORMATION
  Report Type: 
  Country: None (occurrence: None)
  Receive Date: 20060922
  Receipt Date: 20060911
  Transmission Date: 20061208
  Serious: Yes (Life-Threatening)
  Sender: FDA-Public Use
  Company Number: 228878

PATIENT
  Age: 14 Year
  Sex: Male
  Weight: 44.3 kg

DRUGS (1)
  1. NUTROPIN [Suspect]
     Indication: GROWTH HORMONE DEFICIENCY
     Dosage: 2.2 , 7/WEEK
     Dates: start: 20020716

REACTIONS (3)
  - BRAIN NEOPLASM [None]
  - NEURILEMMOMA [None]
  - SPINAL LAMINECTOMY [None]
